FAERS Safety Report 25076999 (Version 2)
Quarter: 2025Q2

REPORT INFORMATION
  Report Type: Spontaneous
  Country: ES (occurrence: ES)
  Receive Date: 20250314
  Receipt Date: 20250402
  Transmission Date: 20250716
  Serious: Yes (Congenital Anomaly)
  Sender: UCB
  Company Number: None

PATIENT
  Sex: Female
  Weight: 2.86 kg

DRUGS (5)
  1. LEVETIRACETAM [Suspect]
     Active Substance: LEVETIRACETAM
     Indication: Epilepsy
     Route: 064
     Dates: start: 2019
  2. LAMOTRIGINE [Suspect]
     Active Substance: LAMOTRIGINE
     Indication: Epilepsy
     Route: 064
     Dates: start: 2019
  3. CLOBAZAM [Suspect]
     Active Substance: CLOBAZAM
     Indication: Epilepsy
     Route: 064
     Dates: start: 2019
  4. LEVOTHYROXINE SODIUM [Concomitant]
     Active Substance: LEVOTHYROXINE SODIUM
     Indication: Hypothyroidism
     Route: 064
     Dates: start: 2019
  5. FOLIC ACID [Concomitant]
     Active Substance: FOLIC ACID
     Indication: Pregnancy
     Route: 064
     Dates: start: 2019

REACTIONS (2)
  - Anorectal malformation [Recovered/Resolved with Sequelae]
  - Maternal exposure during pregnancy [Unknown]

NARRATIVE: CASE EVENT DATE: 20190903
